FAERS Safety Report 11595385 (Version 1)
Quarter: 2015Q4

REPORT INFORMATION
  Report Type: Spontaneous
  Country: JP (occurrence: JP)
  Receive Date: 20151006
  Receipt Date: 20151006
  Transmission Date: 20160304
  Serious: Yes (Hospitalization, Other)
  Sender: FDA-Public Use
  Company Number: JP-AMGEN-JPNSP2015103398

PATIENT
  Age: 56 Year
  Sex: Male

DRUGS (56)
  1. FILGRASTIM [Suspect]
     Active Substance: FILGRASTIM
     Dosage: 300 MUG, 1 IN 1 D
     Route: 041
     Dates: start: 20150310, end: 20150310
  2. FILGRASTIM [Suspect]
     Active Substance: FILGRASTIM
     Dosage: 300 MUG, 1 IN 1 D
     Route: 041
     Dates: start: 20150312, end: 20150312
  3. FILGRASTIM [Suspect]
     Active Substance: FILGRASTIM
     Dosage: 300 MUG, 1 IN 1 D
     Route: 041
     Dates: start: 20150314, end: 20150314
  4. RANIMUSTINE [Suspect]
     Active Substance: RANIMUSTINE
     Dosage: UNK
     Route: 051
     Dates: end: 20150331
  5. PREDNISOLONE. [Suspect]
     Active Substance: PREDNISOLONE
     Dosage: 40 MG, 1 IN 1 D
     Route: 048
     Dates: start: 20150318, end: 20150320
  6. CYCLOPHOSPHAMIDE. [Suspect]
     Active Substance: CYCLOPHOSPHAMIDE
     Indication: ADULT T-CELL LYMPHOMA/LEUKAEMIA
     Dosage: UNK
     Route: 065
     Dates: start: 20150129, end: 20150129
  7. FILGRASTIM [Suspect]
     Active Substance: FILGRASTIM
     Dosage: 300 MUG, 1 IN 1 D
     Route: 041
     Dates: start: 20150308, end: 20150308
  8. DOXORUBICIN HYDROCHLORIDE. [Suspect]
     Active Substance: DOXORUBICIN HYDROCHLORIDE
     Indication: ADULT T-CELL LYMPHOMA/LEUKAEMIA
     Dosage: UNK
     Route: 051
     Dates: start: 20150129, end: 20150129
  9. DOXORUBICIN HYDROCHLORIDE. [Suspect]
     Active Substance: DOXORUBICIN HYDROCHLORIDE
     Dosage: UNK
     Route: 051
     Dates: start: 20150217, end: 20150217
  10. DOXORUBICIN HYDROCHLORIDE. [Suspect]
     Active Substance: DOXORUBICIN HYDROCHLORIDE
     Dosage: UNK
     Route: 051
     Dates: start: 20150318, end: 20150320
  11. PREDNISOLONE. [Suspect]
     Active Substance: PREDNISOLONE
     Dosage: 40 MG, 1 IN 1 D
     Route: 048
     Dates: start: 20150217, end: 20150217
  12. VINCRISTINE SULFATE. [Suspect]
     Active Substance: VINCRISTINE SULFATE
     Dosage: UNK
     Route: 065
     Dates: start: 20150217, end: 20150217
  13. ETOPOSIDE. [Suspect]
     Active Substance: ETOPOSIDE
     Dosage: UNK
     Route: 065
     Dates: start: 20150217, end: 20150217
  14. CARBOPLATIN. [Suspect]
     Active Substance: CARBOPLATIN
     Indication: ADULT T-CELL LYMPHOMA/LEUKAEMIA
     Dosage: UNK
     Route: 065
     Dates: start: 20150129, end: 20150129
  15. CYLOCIDE [Concomitant]
     Active Substance: CYTARABINE
     Dosage: UNK
     Route: 051
  16. FILGRASTIM [Suspect]
     Active Substance: FILGRASTIM
     Indication: NEUTROPENIA
     Dosage: 300 MUG, 1 IN 1 D
     Route: 041
     Dates: start: 20150126, end: 20150126
  17. FILGRASTIM [Suspect]
     Active Substance: FILGRASTIM
     Dosage: 300 MUG, 1 IN 1 D
     Route: 041
     Dates: start: 20150130, end: 20150208
  18. FILGRASTIM [Suspect]
     Active Substance: FILGRASTIM
     Dosage: 300 MUG, 1 IN 1 D
     Route: 041
     Dates: start: 20150316, end: 20150316
  19. DENOSINE                           /00784202/ [Suspect]
     Active Substance: GANCICLOVIR
     Dosage: 200 MG, 2 IN 1 D
     Route: 041
     Dates: start: 20150224, end: 20150313
  20. RANIMUSTINE [Suspect]
     Active Substance: RANIMUSTINE
     Indication: ADULT T-CELL LYMPHOMA/LEUKAEMIA
     Dosage: UNK
     Route: 051
     Dates: start: 20150129, end: 20150129
  21. VINCRISTINE SULFATE. [Suspect]
     Active Substance: VINCRISTINE SULFATE
     Indication: ADULT T-CELL LYMPHOMA/LEUKAEMIA
     Dosage: UNK
     Route: 065
     Dates: start: 20150129, end: 20150129
  22. CYCLOPHOSPHAMIDE. [Suspect]
     Active Substance: CYCLOPHOSPHAMIDE
     Dosage: UNK
     Route: 065
     Dates: start: 20150217, end: 20150217
  23. CYCLOPHOSPHAMIDE. [Suspect]
     Active Substance: CYCLOPHOSPHAMIDE
     Dosage: UNK
     Route: 065
     Dates: start: 20150318, end: 20150320
  24. VINDESINE SULFATE [Suspect]
     Active Substance: VINDESINE SULFATE
     Indication: LEUKAEMIA
     Dosage: UNK
     Route: 065
     Dates: start: 20150129, end: 20150129
  25. VINDESINE SULFATE [Suspect]
     Active Substance: VINDESINE SULFATE
     Dosage: UNK
     Route: 065
     Dates: start: 20150217, end: 20150217
  26. CARBOPLATIN. [Suspect]
     Active Substance: CARBOPLATIN
     Dosage: UNK
     Route: 065
     Dates: start: 20150217, end: 20150217
  27. RANIMUSTINE [Suspect]
     Active Substance: RANIMUSTINE
     Dosage: UNK
     Route: 051
     Dates: start: 20150318, end: 20150320
  28. FUROSEMIDE. [Concomitant]
     Active Substance: FUROSEMIDE
     Dosage: UNK
     Route: 065
  29. FILGRASTIM [Suspect]
     Active Substance: FILGRASTIM
     Dosage: 300 MUG, 1 IN 1 D
     Route: 041
     Dates: start: 20150304, end: 20150306
  30. PREDNISOLONE. [Suspect]
     Active Substance: PREDNISOLONE
     Indication: ADULT T-CELL LYMPHOMA/LEUKAEMIA
     Dosage: 40 MG, 1 IN 1 D
     Route: 048
     Dates: start: 20150129, end: 20150129
  31. ETOPOSIDE. [Suspect]
     Active Substance: ETOPOSIDE
     Dosage: UNK
     Route: 065
     Dates: start: 20150318, end: 20150320
  32. PREDOPA                            /00360702/ [Concomitant]
     Dosage: UNK
     Route: 065
  33. ALOXI [Concomitant]
     Active Substance: PALONOSETRON HYDROCHLORIDE
     Dosage: UNK
     Route: 051
  34. FILGRASTIM [Suspect]
     Active Substance: FILGRASTIM
     Dosage: 300 MUG, 1 IN 1 D
     Route: 041
     Dates: start: 20150218, end: 20150220
  35. FILGRASTIM [Suspect]
     Active Substance: FILGRASTIM
     Dosage: 300 MUG, 1 IN 1 D
     Route: 041
     Dates: start: 20150223, end: 20150301
  36. CARBOPLATIN. [Suspect]
     Active Substance: CARBOPLATIN
     Dosage: UNK
     Route: 065
     Dates: start: 20150318, end: 20150320
  37. CASPOFUNGIN ACETATE [Suspect]
     Active Substance: CASPOFUNGIN ACETATE
     Indication: ASPERGILLOMA
     Dosage: 50 MG, 1 IN 1 D
     Route: 041
     Dates: start: 20141009, end: 20141104
  38. FOSCARNET SODIUM. [Suspect]
     Active Substance: FOSCARNET SODIUM
     Indication: CYTOMEGALOVIRUS INFECTION
     Dosage: UNK
     Route: 051
     Dates: start: 20150314, end: 20150421
  39. RASURITEK [Concomitant]
     Active Substance: RASBURICASE
     Dosage: UNK
     Route: 065
  40. ASPARA POTASSIUM [Concomitant]
     Active Substance: POTASSIUM ASPARTATE
     Dosage: UNK
     Route: 048
  41. POTASSIUM CHLORIDE. [Concomitant]
     Active Substance: POTASSIUM CHLORIDE
     Dosage: UNK
     Route: 051
  42. EMEND [Concomitant]
     Active Substance: APREPITANT
     Dosage: UNK
     Route: 048
  43. FILGRASTIM [Suspect]
     Active Substance: FILGRASTIM
     Dosage: 300 MUG, 1 IN 1 D
     Route: 041
     Dates: start: 20150211, end: 20150211
  44. RANIMUSTINE [Suspect]
     Active Substance: RANIMUSTINE
     Dosage: UNK
     Route: 051
     Dates: start: 20150217, end: 20150217
  45. ETOPOSIDE. [Suspect]
     Active Substance: ETOPOSIDE
     Indication: ADULT T-CELL LYMPHOMA/LEUKAEMIA
     Dosage: UNK
     Route: 065
     Dates: start: 20150129, end: 20150129
  46. FILGRASTIM [Suspect]
     Active Substance: FILGRASTIM
     Dosage: 300 MUG, 1 IN 1 D
     Route: 041
     Dates: start: 20150128, end: 20150128
  47. DENOSINE                           /00784202/ [Suspect]
     Active Substance: GANCICLOVIR
     Indication: CYTOMEGALOVIRUS CHORIORETINITIS
     Dosage: 200 MG, 2 IN 1 D
     Route: 041
     Dates: start: 20150218, end: 20150224
  48. DOXORUBICIN HYDROCHLORIDE. [Suspect]
     Active Substance: DOXORUBICIN HYDROCHLORIDE
     Dosage: UNK
     Route: 051
     Dates: end: 20150331
  49. PREDNISOLONE. [Suspect]
     Active Substance: PREDNISOLONE
     Dosage: 40 MG, 1 IN 1 D
     Route: 048
     Dates: end: 20150331
  50. VINCRISTINE SULFATE. [Suspect]
     Active Substance: VINCRISTINE SULFATE
     Dosage: UNK
     Route: 065
     Dates: start: 20150318, end: 20150320
  51. VINDESINE SULFATE [Suspect]
     Active Substance: VINDESINE SULFATE
     Dosage: UNK
     Route: 065
     Dates: start: 20150318, end: 20150320
  52. CALCICOL [Concomitant]
     Active Substance: CALCIUM GLUCONATE
     Dosage: UNK
     Route: 065
  53. ELCATONIN [Concomitant]
     Active Substance: ELCATONIN
     Dosage: UNK
     Route: 051
  54. NEUTROGIN [Concomitant]
     Active Substance: LENOGRASTIM
     Dosage: UNK
     Route: 065
  55. PRIMPERAN [Concomitant]
     Active Substance: METOCLOPRAMIDE HYDROCHLORIDE
     Dosage: UNK
     Route: 051
  56. SODIUM BICARBONATE. [Concomitant]
     Active Substance: SODIUM BICARBONATE
     Dosage: UNK
     Route: 048

REACTIONS (2)
  - Bone marrow failure [Recovering/Resolving]
  - Drug resistance [Unknown]

NARRATIVE: CASE EVENT DATE: 20150223
